FAERS Safety Report 25330445 (Version 1)
Quarter: 2025Q2

REPORT INFORMATION
  Report Type: Spontaneous
  Country: FR (occurrence: FR)
  Receive Date: 20250519
  Receipt Date: 20250519
  Transmission Date: 20250717
  Serious: Yes (Hospitalization, Other)
  Sender: BAXTER
  Company Number: None

PATIENT
  Age: 81 Year
  Sex: Male
  Weight: 64 kg

DRUGS (5)
  1. PROPOFOL [Suspect]
     Active Substance: PROPOFOL
     Indication: Induction of anaesthesia
     Route: 042
     Dates: start: 20250414, end: 20250414
  2. SUFENTANIL CITRATE [Suspect]
     Active Substance: SUFENTANIL CITRATE
     Indication: Induction of anaesthesia
     Route: 042
     Dates: start: 20250414, end: 20250414
  3. ATRACURIUM [Suspect]
     Active Substance: ATRACURIUM
     Indication: Induction of anaesthesia
     Route: 042
     Dates: start: 20250414, end: 20250414
  4. IOMERON [Suspect]
     Active Substance: IOMEPROL
     Indication: Scan with contrast
     Route: 042
     Dates: start: 20250414, end: 20250414
  5. EPHEDRINE HYDROCHLORIDE [Suspect]
     Active Substance: EPHEDRINE HYDROCHLORIDE
     Indication: Haemodynamic instability
     Route: 042
     Dates: start: 20250414, end: 20250414

REACTIONS (2)
  - Type I hypersensitivity [Recovered/Resolved]
  - Urticaria [Recovered/Resolved]

NARRATIVE: CASE EVENT DATE: 20250414
